FAERS Safety Report 13065486 (Version 1)
Quarter: 2016Q4

REPORT INFORMATION
  Report Type: Spontaneous
  Country: US (occurrence: US)
  Receive Date: 20161227
  Receipt Date: 20161227
  Transmission Date: 20170207
  Serious: Yes (Death, Hospitalization)
  Sender: FDA-Public Use
  Company Number: US-SA-2016SA218345

PATIENT
  Age: 56 Year
  Sex: Female

DRUGS (13)
  1. AUBAGIO [Suspect]
     Active Substance: TERIFLUNOMIDE
     Indication: MULTIPLE SCLEROSIS RELAPSE
     Route: 048
     Dates: start: 201608
  2. COPAXONE [Concomitant]
     Active Substance: GLATIRAMER ACETATE
     Indication: MULTIPLE SCLEROSIS RELAPSE
  3. ATORVASTATIN [Concomitant]
     Active Substance: ATORVASTATIN
  4. SPIRONOLACTONE. [Concomitant]
     Active Substance: SPIRONOLACTONE
  5. LASIX [Concomitant]
     Active Substance: FUROSEMIDE
  6. AVONEX [Concomitant]
     Active Substance: INTERFERON BETA-1A
  7. AUBAGIO [Suspect]
     Active Substance: TERIFLUNOMIDE
     Indication: MULTIPLE SCLEROSIS RELAPSE
     Route: 048
     Dates: start: 20160120, end: 201602
  8. REBIF [Concomitant]
     Active Substance: INTERFERON BETA-1A
  9. COPAXONE [Concomitant]
     Active Substance: GLATIRAMER ACETATE
     Indication: MULTIPLE SCLEROSIS RELAPSE
  10. CARVEDILOL. [Concomitant]
     Active Substance: CARVEDILOL
  11. LISINOPRIL. [Concomitant]
     Active Substance: LISINOPRIL
  12. KEPPRA [Concomitant]
     Active Substance: LEVETIRACETAM
  13. TECFIDERA [Concomitant]
     Active Substance: DIMETHYL FUMARATE
     Indication: MULTIPLE SCLEROSIS RELAPSE
     Dates: end: 201601

REACTIONS (3)
  - Malaise [Unknown]
  - Cardiac failure [Fatal]
  - Unevaluable event [Unknown]

NARRATIVE: CASE EVENT DATE: 20161109
